FAERS Safety Report 16225242 (Version 2)
Quarter: 2019Q2

REPORT INFORMATION
  Report Type: Spontaneous
  Country: US (occurrence: US)
  Receive Date: 20190422
  Receipt Date: 20190527
  Transmission Date: 20190711
  Serious: No
  Sender: FDA-Public Use
  Company Number: US-BAUSCH-BL-2019-010599

PATIENT
  Sex: Female

DRUGS (3)
  1. OPCON-A [Suspect]
     Active Substance: NAPHAZOLINE HYDROCHLORIDE\PHENIRAMINE MALEATE
     Dosage: NEW BOTTLE, USED IN A COUPLE TIMES A DAY
     Route: 047
  2. OPCON-A [Suspect]
     Active Substance: NAPHAZOLINE HYDROCHLORIDE\PHENIRAMINE MALEATE
     Indication: EYE ALLERGY
     Dosage: USED FOR 10 OR 15 YEARS
     Route: 047
  3. OPCON-A [Suspect]
     Active Substance: NAPHAZOLINE HYDROCHLORIDE\PHENIRAMINE MALEATE
     Dosage: OLD BOTTLE, USED THREE DROPS IN EYES
     Route: 047

REACTIONS (2)
  - Drug ineffective [Unknown]
  - Product quality issue [Unknown]
